FAERS Safety Report 8160795-0 (Version None)
Quarter: 2012Q1

REPORT INFORMATION
  Report Type: 
  Country: None (occurrence: None)
  Receive Date: 20120223
  Receipt Date: 20120217
  Transmission Date: 20120608
  Serious: Yes (Other)
  Sender: FDA-Public Use
  Company Number: PHHY2012CA014696

PATIENT
  Sex: Male

DRUGS (2)
  1. NEURONTIN [Concomitant]
     Dates: start: 20111011
  2. CLOZARIL [Suspect]
     Dosage: 650 MG, DAILY
     Dates: start: 20090710

REACTIONS (2)
  - CONVULSION [None]
  - FALL [None]
